FAERS Safety Report 6091746-0 (Version None)
Quarter: 2009Q1

REPORT INFORMATION
  Report Type: 
  Country: None (occurrence: None)
  Receive Date: 20090225
  Receipt Date: 20080508
  Transmission Date: 20090719
  Serious: No
  Sender: FDA-Public Use
  Company Number: A0727971A

PATIENT
  Sex: Female

DRUGS (1)
  1. VALTREX [Suspect]
     Dosage: 500MG THREE TIMES PER DAY
     Route: 048

REACTIONS (3)
  - MEDICATION ERROR [None]
  - PHOTOSENSITIVITY REACTION [None]
  - SUNBURN [None]
